FAERS Safety Report 8602531-7 (Version None)
Quarter: 2012Q3

REPORT INFORMATION
  Report Type: 
  Country: None (occurrence: None)
  Receive Date: 20120817
  Receipt Date: 20120802
  Transmission Date: 20120928
  Serious: Yes (Other)
  Sender: FDA-Public Use
  Company Number: PHHY2012ZA071121

PATIENT
  Sex: Female

DRUGS (1)
  1. COMBIPATCH [Suspect]
     Route: 062

REACTIONS (4)
  - CRYING [None]
  - APPLICATION SITE RASH [None]
  - CRYPTOCOCCOSIS [None]
  - HEADACHE [None]
